FAERS Safety Report 4336121-1 (Version None)
Quarter: 2004Q2

REPORT INFORMATION
  Report Type: 
  Country: None (occurrence: None)
  Receive Date: 20040409
  Receipt Date: 20030911
  Transmission Date: 20050107
  Serious: Yes (Disabling)
  Sender: FDA-Public Use
  Company Number: JP-MERCK-0309USA01683

PATIENT
  Age: 50 Year
  Sex: Male

DRUGS (11)
  1. AMITRIPTYLINE HYDROCHLORIDE [Concomitant]
     Indication: DEPRESSION
     Route: 065
     Dates: start: 19990101, end: 20031201
  2. AMOXAPINE [Concomitant]
     Indication: DEPRESSION
     Route: 065
     Dates: start: 19990101, end: 20031201
  3. BROTIZOLAM [Concomitant]
     Indication: DEPRESSION
     Route: 065
     Dates: start: 19990101, end: 20031201
  4. CLOXAZOLAM [Concomitant]
     Indication: DEPRESSION
     Route: 065
     Dates: start: 19990101, end: 20031201
  5. FLUNITRAZEPAM [Concomitant]
     Indication: DEPRESSION
     Route: 065
     Dates: start: 19990101, end: 20031201
  6. IMIPRAMINE HYDROCHLORIDE [Concomitant]
     Indication: DEPRESSION
     Route: 065
     Dates: start: 19990101, end: 20031201
  7. CRIXIVAN [Suspect]
     Indication: HIV INFECTION
     Route: 048
     Dates: start: 19970426, end: 19980930
  8. LAMIVUDINE [Suspect]
     Indication: HIV INFECTION
     Route: 048
     Dates: start: 19970426
  9. NELFINAVIR MESYLATE [Suspect]
     Indication: HIV INFECTION
     Route: 048
     Dates: start: 19981001, end: 19990506
  10. NELFINAVIR MESYLATE [Suspect]
     Route: 048
     Dates: start: 19990507, end: 20040224
  11. ZIDOVUDINE [Suspect]
     Indication: HIV INFECTION
     Route: 048
     Dates: start: 19950324

REACTIONS (3)
  - CALCULUS URINARY [None]
  - HEPATIC FUNCTION ABNORMAL [None]
  - RENAL ATROPHY [None]
